FAERS Safety Report 4589143-X (Version None)
Quarter: 2005Q1

REPORT INFORMATION
  Report Type: 
  Country: None (occurrence: None)
  Receive Date: 20050125
  Receipt Date: 20041021
  Transmission Date: 20050727
  Serious: No
  Sender: FDA-Public Use
  Company Number: USA040771535

PATIENT
  Age: 55 Year
  Sex: Female

DRUGS (3)
  1. FORTEO [Suspect]
  2. CLINDAMYCIN [Concomitant]
  3. CITRACAL (CALCIUM CITRATE) [Concomitant]

REACTIONS (3)
  - CHEST PAIN [None]
  - HEART RATE INCREASED [None]
  - NAUSEA [None]
